FAERS Safety Report 5766228-3 (Version None)
Quarter: 2008Q2

REPORT INFORMATION
  Report Type: 
  Country: None (occurrence: None)
  Receive Date: 20080606
  Receipt Date: 20080523
  Transmission Date: 20081010
  Serious: Yes (Other)
  Sender: FDA-Public Use
  Company Number: 2008S1008927

PATIENT
  Age: 68 Year
  Sex: Female

DRUGS (7)
  1. CLONIDINE HCL [Suspect]
     Indication: HYPERTENSION
     Dosage: 0.1 MG;DAILY;ORAL
     Route: 048
     Dates: start: 20080520, end: 20080521
  2. INSULIN (CON.) [Concomitant]
  3. DIOVAN /01319601/ (CON.) [Concomitant]
  4. TOPROL XL (CON.) [Concomitant]
  5. ASPIRIN (CON.) [Concomitant]
  6. TRICOR /00499301/ (CON.) [Concomitant]
  7. VITORIN (CON.) [Concomitant]

REACTIONS (3)
  - DYSPNOEA [None]
  - EYE SWELLING [None]
  - LIP SWELLING [None]
